FAERS Safety Report 18979247 (Version 1)
Quarter: 2021Q1

REPORT INFORMATION
  Report Type: Spontaneous
  Country: US (occurrence: US)
  Receive Date: 20210308
  Receipt Date: 20210308
  Transmission Date: 20210420
  Serious: Yes (Hospitalization, Other)
  Sender: FDA-Public Use
  Company Number: US-AUROBINDO-AUR-APL-2019-051125

PATIENT
  Sex: Male

DRUGS (4)
  1. ZEVALIN [Suspect]
     Active Substance: IBRITUMOMAB TIUXETAN
     Indication: NON-HODGKIN^S LYMPHOMA
     Dosage: 1 UNK, ONCE A DAY
     Route: 042
     Dates: start: 20030115, end: 20030115
  2. MABTHERA [Suspect]
     Active Substance: RITUXIMAB
     Indication: NON-HODGKIN^S LYMPHOMA
     Dosage: 593 MILLIGRAM, ONCE A DAY
     Route: 042
     Dates: start: 20030107, end: 20030107
  3. ZEVALIN [Suspect]
     Active Substance: IBRITUMOMAB TIUXETAN
     Indication: NON-HODGKIN^S LYMPHOMA
     Dosage: 1 UNK, ONCE A DAY
     Route: 042
     Dates: start: 20030107, end: 20030107
  4. MABTHERA [Suspect]
     Active Substance: RITUXIMAB
     Dosage: 1 UNK, ONCE A DAY
     Route: 042
     Dates: start: 20030115, end: 20030115

REACTIONS (2)
  - Mucosal inflammation [Recovering/Resolving]
  - Intervertebral disc disorder [Recovered/Resolved]

NARRATIVE: CASE EVENT DATE: 200305
